FAERS Safety Report 11351431 (Version 1)
Quarter: 2015Q3

REPORT INFORMATION
  Report Type: Spontaneous
  Country: US (occurrence: None)
  Receive Date: 20150806
  Receipt Date: 20150806
  Transmission Date: 20151125
  Serious: Yes (Hospitalization)
  Sender: FDA-Public Use
  Company Number: None

PATIENT
  Age: 58 Year
  Sex: Female
  Weight: 74.7 kg

DRUGS (4)
  1. CYCLOPHOSPHAMIDE. [Suspect]
     Active Substance: CYCLOPHOSPHAMIDE
     Dates: end: 20150720
  2. METHOTREXATE [Suspect]
     Active Substance: METHOTREXATE
     Dates: end: 20150713
  3. MERCAPTOPURINE. [Suspect]
     Active Substance: MERCAPTOPURINE
     Dates: end: 20150731
  4. CYTARABINE. [Suspect]
     Active Substance: CYTARABINE
     Dates: end: 20150730

REACTIONS (6)
  - Abdominal pain lower [None]
  - Chills [None]
  - Neutrophil count decreased [None]
  - Palpitations [None]
  - Cystitis [None]
  - Pyrexia [None]

NARRATIVE: CASE EVENT DATE: 20150801
